FAERS Safety Report 6151302-2 (Version None)
Quarter: 2009Q2

REPORT INFORMATION
  Report Type: 
  Country: None (occurrence: None)
  Receive Date: 20090410
  Receipt Date: 20090401
  Transmission Date: 20091009
  Serious: Yes (Other)
  Sender: FDA-Public Use
  Company Number: PHHO2009DE04350

PATIENT
  Sex: Female

DRUGS (4)
  1. CYCLOSPORINE [Suspect]
     Indication: TRANSPLANT
     Dosage: 200 MG X1 PER DAY
     Route: 048
     Dates: start: 20030915
  2. MYCOPHENOLATE MOFETIL [Suspect]
  3. PREDNISOLONE [Suspect]
  4. DACLIZUMAB [Suspect]

REACTIONS (1)
  - SEROMA [None]
